FAERS Safety Report 11925261 (Version 2)
Quarter: 2016Q1

REPORT INFORMATION
  Report Type: Other
  Country: FR (occurrence: FR)
  Receive Date: 20160118
  Receipt Date: 20160203
  Transmission Date: 20160526
  Serious: Yes (Other)
  Sender: FDA-Public Use
  Company Number: FR-DEP_13392_2016

PATIENT
  Age: 53 Year
  Sex: Female

DRUGS (6)
  1. GABAPENTIN. [Suspect]
     Active Substance: GABAPENTIN
     Indication: LEIOMYOSARCOMA
     Dosage: DF
  2. ESOMEPRAZOLE [Suspect]
     Active Substance: ESOMEPRAZOLE
     Indication: LEIOMYOSARCOMA
     Dosage: DF
  3. ACETAMINOPHEN. [Suspect]
     Active Substance: ACETAMINOPHEN
     Indication: LEIOMYOSARCOMA
     Dosage: DF
  4. GABAPENTIN. [Suspect]
     Active Substance: GABAPENTIN
     Dosage: DF, DOSE REDUCED
  5. SORAFENIB [Suspect]
     Active Substance: SORAFENIB
     Indication: LEIOMYOSARCOMA
     Dosage: DF
     Route: 048
  6. CLOMIPRAMINE [Suspect]
     Active Substance: CLOMIPRAMINE
     Indication: LEIOMYOSARCOMA
     Dosage: DF

REACTIONS (2)
  - Off label use [Not Recovered/Not Resolved]
  - Hepatotoxicity [Not Recovered/Not Resolved]
